FAERS Safety Report 9117860 (Version 1)
Quarter: 2013Q1

REPORT INFORMATION
  Report Type: Spontaneous
  Country: GB (occurrence: GB)
  Receive Date: 20130128
  Receipt Date: 20130128
  Transmission Date: 20140127
  Serious: Yes (Hospitalization, Other)
  Sender: FDA-Public Use
  Company Number: GB-PFIZER INC-2010157547

PATIENT
  Age: 48 Year
  Sex: Female

DRUGS (1)
  1. SUTENT [Suspect]
     Indication: METASTATIC RENAL CELL CARCINOMA
     Dosage: 50 MG PER DAY, 28 DAYS IN EVERY 42 DAYS
     Route: 048
     Dates: start: 201009

REACTIONS (8)
  - Posterior reversible encephalopathy syndrome [Recovered/Resolved]
  - Grand mal convulsion [Recovered/Resolved]
  - Malignant hypertension [Unknown]
  - Headache [Recovered/Resolved]
  - Vomiting [Unknown]
  - Visual impairment [Recovered/Resolved]
  - Nausea [Unknown]
  - Dyspepsia [Unknown]
